FAERS Safety Report 12442948 (Version 1)
Quarter: 2016Q2

REPORT INFORMATION
  Report Type: Spontaneous
  Country: US (occurrence: None)
  Receive Date: 20160606
  Receipt Date: 20160606
  Transmission Date: 20160815
  Serious: No
  Sender: FDA-Public Use
  Company Number: None

PATIENT
  Age: 58 Year
  Sex: Female
  Weight: 74.84 kg

DRUGS (8)
  1. SIMVASTATIN. [Concomitant]
     Active Substance: SIMVASTATIN
  2. TRAMADOL HCL50MGNCD65162-0627-11, 50 MG AMNEAL [Suspect]
     Active Substance: TRAMADOL HYDROCHLORIDE
     Indication: PERIPHERAL NERVE DECOMPRESSION
     Dosage: 2 TABLET(S) TWICE A DAY TAKEN BY MOUTH
     Route: 048
     Dates: start: 20160605, end: 20160605
  3. VITAMIN D [Concomitant]
     Active Substance: CHOLECALCIFEROL
  4. TRAMADOL HCL50MGNCD65162-0627-11, 50 MG AMNEAL [Suspect]
     Active Substance: TRAMADOL HYDROCHLORIDE
     Indication: INTERVERTEBRAL DISC PROTRUSION
     Dosage: 2 TABLET(S) TWICE A DAY TAKEN BY MOUTH
     Route: 048
     Dates: start: 20160605, end: 20160605
  5. NAPROSYN [Concomitant]
     Active Substance: NAPROXEN
  6. TRAMADOL HCL50MGNCD65162-0627-11, 50 MG AMNEAL [Suspect]
     Active Substance: TRAMADOL HYDROCHLORIDE
     Indication: MIGRAINE
     Dosage: 2 TABLET(S) TWICE A DAY TAKEN BY MOUTH
     Route: 048
     Dates: start: 20160605, end: 20160605
  7. FLUTICASONE [Concomitant]
     Active Substance: FLUTICASONE\FLUTICASONE PROPIONATE
  8. MULTIVITAMIN [Concomitant]
     Active Substance: VITAMINS

REACTIONS (2)
  - Product substitution issue [None]
  - Drug ineffective [None]

NARRATIVE: CASE EVENT DATE: 20160605
